FAERS Safety Report 8122044-9 (Version None)
Quarter: 2012Q1

REPORT INFORMATION
  Report Type: 
  Country: None (occurrence: None)
  Receive Date: 20120208
  Receipt Date: 20120131
  Transmission Date: 20120608
  Serious: Yes (Hospitalization)
  Sender: FDA-Public Use
  Company Number: US-BAYER-2011-041039

PATIENT
  Age: 32 Year
  Sex: Female
  Weight: 68 kg

DRUGS (3)
  1. YAZ [Suspect]
     Dosage: UNK
     Dates: start: 20060627, end: 20060826
  2. AMOXICILLIN [Concomitant]
     Dosage: UNK
     Dates: start: 20050101, end: 20090101
  3. MOTRIN [Concomitant]
     Dosage: AS NEEDED

REACTIONS (8)
  - INJURY [None]
  - EMOTIONAL DISTRESS [None]
  - DYSPNOEA [None]
  - CHEST PAIN [None]
  - PAIN IN EXTREMITY [None]
  - PAIN [None]
  - ANXIETY [None]
  - PULMONARY EMBOLISM [None]
